FAERS Safety Report 9442256 (Version 1)
Quarter: 2013Q3

REPORT INFORMATION
  Report Type: Spontaneous
  Country: US (occurrence: US)
  Receive Date: 20130806
  Receipt Date: 20130806
  Transmission Date: 20140515
  Serious: Yes (Other)
  Sender: FDA-Public Use
  Company Number: US-MYLANLABS-2013S1016723

PATIENT
  Age: 69 Year
  Sex: Female

DRUGS (1)
  1. LISINOPRIL AND HYDROCHLOROTHIAZIDE [Suspect]
     Indication: HYPERTENSION
     Dosage: LISINOPRIL 20MG/HYDROCHLOROTHIAZIDE 12.5MG
     Route: 065

REACTIONS (4)
  - Angioedema [Recovered/Resolved]
  - Drug level above therapeutic [Recovered/Resolved]
  - Incorrect dose administered [Recovered/Resolved]
  - Dehydration [Unknown]
